FAERS Safety Report 6372599-X (Version None)
Quarter: 2009Q3

REPORT INFORMATION
  Report Type: 
  Country: None (occurrence: None)
  Receive Date: 20090924
  Receipt Date: 20081008
  Transmission Date: 20100115
  Serious: No
  Sender: FDA-Public Use
  Company Number: US-ASTRAZENECA-2008UW18685

PATIENT
  Age: 47 Year
  Sex: Female
  Weight: 78 kg

DRUGS (3)
  1. SEROQUEL [Suspect]
     Route: 048
     Dates: start: 20080808
  2. LISINOPRIL [Concomitant]
  3. LAMICTAL [Concomitant]

REACTIONS (3)
  - APHONIA [None]
  - BEDRIDDEN [None]
  - NIGHTMARE [None]
